FAERS Safety Report 8577220 (Version 2)
Quarter: 2014Q1

REPORT INFORMATION
  Report Type: Spontaneous
  Country: US (occurrence: US)
  Receive Date: 20120524
  Receipt Date: 20140210
  Transmission Date: 20141002
  Serious: No
  Sender: FDA-Public Use
  Company Number: US-PFIZER INC-2012123555

PATIENT
  Age: 42 Year
  Sex: Female

DRUGS (2)
  1. VENLAFAXINE HCL [Suspect]
     Indication: ANXIETY
     Dosage: UNK
  2. VENLAFAXINE HCL [Suspect]
     Indication: DEPRESSION

REACTIONS (1)
  - Drug ineffective [Unknown]
